FAERS Safety Report 9264058 (Version 3)
Quarter: 2013Q2

REPORT INFORMATION
  Report Type: Report from Study
  Country: US (occurrence: US)
  Receive Date: 20130430
  Receipt Date: 20130520
  Transmission Date: 20140414
  Serious: Yes (Other)
  Sender: FDA-Public Use
  Company Number: US-ACTELION-A-NJ2009-26728

PATIENT
  Age: 66 Year
  Sex: Female

DRUGS (4)
  1. TRACLEER [Suspect]
     Indication: PULMONARY ARTERIAL HYPERTENSION
     Dosage: UNK
     Route: 048
  2. SILDENAFIL [Concomitant]
  3. REMODULIN [Concomitant]
  4. FLOLAN [Concomitant]

REACTIONS (7)
  - Deafness [Unknown]
  - Ear infection [Unknown]
  - Pain [Unknown]
  - Middle ear effusion [Unknown]
  - Hypoacusis [Unknown]
  - Sinusitis [Unknown]
  - Sinus congestion [Unknown]
